FAERS Safety Report 9110051 (Version 1)
Quarter: 2013Q1

REPORT INFORMATION
  Report Type: Spontaneous
  Country: US (occurrence: US)
  Receive Date: 20130222
  Receipt Date: 20130222
  Transmission Date: 20140127
  Serious: Yes (Hospitalization, Other)
  Sender: FDA-Public Use
  Company Number: US-UCBSA-078795

PATIENT
  Age: 58 Year
  Sex: Male

DRUGS (17)
  1. METOLAZONE [Suspect]
     Dosage: UNKNOWN DOSE
  2. SAXAGLIPTIN [Suspect]
     Indication: TYPE 2 DIABETES MELLITUS
     Dosage: UNKNOWN DOSE
     Dates: start: 20110314
  3. LANTUS [Suspect]
     Indication: TYPE 2 DIABETES MELLITUS
     Dosage: DOSE: 1 DOSAGE FORM, DOSES OF 35 IU, 60 IU, 50 IU AND 47 IU
  4. HUMALOG [Suspect]
     Indication: TYPE 2 DIABETES MELLITUS
     Dosage: AT 60 IU DOSE: 1 DOSAGE FORM
     Dates: start: 20110628, end: 20111116
  5. HUMALOG [Suspect]
     Indication: TYPE 2 DIABETES MELLITUS
     Dosage: AT 45 IU DOSE: 1 DOSAGE FORM
     Dates: start: 20111117, end: 20120830
  6. HUMALOG [Suspect]
     Indication: TYPE 2 DIABETES MELLITUS
     Dosage: AT 32 IU DOSE:1 DOSAGE FORM
     Dates: start: 20120831
  7. BUMEX [Suspect]
     Dosage: UNKNOWN DOSE
  8. ASPIRIN [Suspect]
     Dosage: UNKNOWN DOSE
  9. PLACEBO [Suspect]
     Indication: TYPE 2 DIABETES MELLITUS
     Dates: start: 20110314
  10. EZETIMIBE [Concomitant]
     Dosage: UNKNOWN DOSE
  11. TRLMETAZIDLNE [Concomitant]
     Dosage: UNKNOWN DOSE
  12. RANOLAZLNE HCL [Concomitant]
     Dosage: UNKNOWN DOSE
  13. IVABRADINE [Concomitant]
     Dosage: UNKNOWN DOSE
  14. OXYCODONE HCL [Concomitant]
     Dosage: UNKNOWN DOSE
     Dates: start: 20121116
  15. SODIUM POLYSTYRENE SULFONATE [Concomitant]
     Indication: RENAL FAILURE CHRONIC
     Dosage: UNKNOWN DOSE
  16. IRON INFUSION + EPOETIN ALFA [Concomitant]
     Indication: RENAL FAILURE CHRONIC
     Dosage: UNKNOWN DOSE
  17. IRON INFUSION + EPOETIN ALFA [Concomitant]
     Indication: RENAL FAILURE CHRONIC
     Dosage: UNKNOWN DOSE

REACTIONS (3)
  - Renal failure acute [Recovered/Resolved with Sequelae]
  - Wound haemorrhage [Recovering/Resolving]
  - Abdominal pain [Unknown]
